FAERS Safety Report 11143992 (Version 1)
Quarter: 2015Q2

REPORT INFORMATION
  Report Type: Spontaneous
  Country: AU (occurrence: AU)
  Receive Date: 20150528
  Receipt Date: 20150528
  Transmission Date: 20150821
  Serious: Yes (Hospitalization)
  Sender: FDA-Public Use
  Company Number: AU-CELGENE-AUS-2014114236

PATIENT
  Age: 69 Year
  Sex: Male
  Weight: 63 kg

DRUGS (1)
  1. THALIDOMIDE [Suspect]
     Active Substance: THALIDOMIDE
     Indication: PLASMA CELL MYELOMA
     Route: 048
     Dates: start: 2014, end: 2014

REACTIONS (2)
  - Myeloma cast nephropathy [Not Recovered/Not Resolved]
  - Plasma cell myeloma [Not Recovered/Not Resolved]

NARRATIVE: CASE EVENT DATE: 20141115
